FAERS Safety Report 5802183-5 (Version None)
Quarter: 2008Q3

REPORT INFORMATION
  Report Type: 
  Country: None (occurrence: None)
  Receive Date: 20080707
  Receipt Date: 20080625
  Transmission Date: 20090109
  Serious: Yes (Hospitalization)
  Sender: FDA-Public Use
  Company Number: US-PFIZER INC-2008052892

PATIENT
  Age: 57 Year
  Sex: Male
  Weight: 53.9 kg

DRUGS (1)
  1. SUTENT [Suspect]
     Indication: THYROID CANCER
     Route: 048

REACTIONS (6)
  - DEHYDRATION [None]
  - HYPOTENSION [None]
  - PNEUMONITIS [None]
  - PYREXIA [None]
  - TOOTH INFECTION [None]
  - TOOTHACHE [None]
